FAERS Safety Report 14700724 (Version 2)
Quarter: 2019Q2

REPORT INFORMATION
  Report Type: Spontaneous
  Country: US (occurrence: US)
  Receive Date: 20180330
  Receipt Date: 20190502
  Transmission Date: 20190711
  Serious: Yes (Other)
  Sender: FDA-Public Use
  Company Number: US-ASTRAZENECA-2018SE37605

PATIENT
  Sex: Female
  Weight: 90.7 kg

DRUGS (27)
  1. VITAMIN D2 [Concomitant]
     Active Substance: ERGOCALCIFEROL
  2. ZOFRAN [Concomitant]
     Active Substance: ONDANSETRON HYDROCHLORIDE
  3. LISINOPRIL. [Concomitant]
     Active Substance: LISINOPRIL
  4. PRILOSEC [Suspect]
     Active Substance: OMEPRAZOLE MAGNESIUM
     Indication: GASTROOESOPHAGEAL REFLUX DISEASE
     Route: 048
  5. COLYTE [Concomitant]
     Active Substance: POLYETHYLENE GLYCOL 3350\POTASSIUM CHLORIDE\SODIUM BICARBONATE\SODIUM CHLORIDE\SODIUM SULFATE ANHYDROUS
  6. OYSTER SHELL CALCIUM-VID3 [Concomitant]
  7. PRILOSEC [Suspect]
     Active Substance: OMEPRAZOLE MAGNESIUM
     Indication: GASTROOESOPHAGEAL REFLUX DISEASE
     Dosage: GENERIC
     Route: 065
     Dates: start: 20161011, end: 20161012
  8. MEVACOR [Concomitant]
     Active Substance: LOVASTATIN
  9. TYLENOL [Concomitant]
     Active Substance: ACETAMINOPHEN
  10. NEXIUM [Suspect]
     Active Substance: ESOMEPRAZOLE MAGNESIUM
     Indication: GASTROOESOPHAGEAL REFLUX DISEASE
     Route: 048
     Dates: start: 200401, end: 201706
  11. FLONASE [Concomitant]
     Active Substance: FLUTICASONE PROPIONATE
  12. ROXICODONE [Concomitant]
     Active Substance: OXYCODONE HYDROCHLORIDE
  13. SENSIPAR [Concomitant]
     Active Substance: CINACALCET HYDROCHLORIDE
  14. ALBUTEROL. [Concomitant]
     Active Substance: ALBUTEROL
  15. PHOSLO [Concomitant]
     Active Substance: CALCIUM ACETATE
  16. NEXIUM [Suspect]
     Active Substance: ESOMEPRAZOLE MAGNESIUM
     Indication: GASTROOESOPHAGEAL REFLUX DISEASE
     Route: 048
  17. PANTOPRAZOLE [Suspect]
     Active Substance: PANTOPRAZOLE
     Indication: GASTROOESOPHAGEAL REFLUX DISEASE
     Route: 065
  18. PANTOPRAZOLE [Suspect]
     Active Substance: PANTOPRAZOLE
     Indication: GASTROOESOPHAGEAL REFLUX DISEASE
     Dosage: 80 MG IV 25 ML PER HOUR
     Route: 042
     Dates: start: 20161010, end: 20161026
  19. IMODIUM [Concomitant]
     Active Substance: LOPERAMIDE HYDROCHLORIDE
  20. APRESOLINE HYDROCHLORIDE [Concomitant]
     Active Substance: HYDRALAZINE HYDROCHLORIDE
  21. ZANTAC [Concomitant]
     Active Substance: RANITIDINE HYDROCHLORIDE
  22. FAMOTIDINE. [Concomitant]
     Active Substance: FAMOTIDINE
  23. PROZAC [Concomitant]
     Active Substance: FLUOXETINE HYDROCHLORIDE
  24. COLACE [Concomitant]
     Active Substance: DOCUSATE SODIUM
  25. LOVASTATIN. [Concomitant]
     Active Substance: LOVASTATIN
  26. NEXIUM [Suspect]
     Active Substance: ESOMEPRAZOLE MAGNESIUM
     Indication: GASTROOESOPHAGEAL REFLUX DISEASE
     Dosage: GENERIC
     Route: 065
     Dates: start: 20140912, end: 20161210
  27. ATENOLOL. [Concomitant]
     Active Substance: ATENOLOL

REACTIONS (6)
  - Renal injury [Unknown]
  - Chronic kidney disease [Unknown]
  - Nephropathy [Not Recovered/Not Resolved]
  - End stage renal disease [Unknown]
  - Acute kidney injury [Unknown]
  - Renal failure [Not Recovered/Not Resolved]
